FAERS Safety Report 7289264-7 (Version None)
Quarter: 2011Q1

REPORT INFORMATION
  Report Type: 
  Country: None (occurrence: None)
  Receive Date: 20110211
  Receipt Date: 20110201
  Transmission Date: 20110831
  Serious: Yes (Other)
  Sender: FDA-Public Use
  Company Number: US-PURDUE-USA-2010-0054151

PATIENT
  Sex: Male

DRUGS (3)
  1. ADVAIR DISKUS 100/50 [Concomitant]
     Indication: ASTHMA
  2. OXYCONTIN [Suspect]
     Indication: PRODUCT USED FOR UNKNOWN INDICATION
     Dosage: 80 MG, TID
     Dates: start: 20101001, end: 20110127
  3. THEOPHYLLINE [Suspect]
     Indication: ASTHMA

REACTIONS (3)
  - ASTHMA [None]
  - OEDEMA PERIPHERAL [None]
  - INFECTION [None]
